FAERS Safety Report 18233720 (Version 4)
Quarter: 2020Q4

REPORT INFORMATION
  Report Type: Report from Study
  Country: CA (occurrence: CA)
  Receive Date: 20200904
  Receipt Date: 20201001
  Transmission Date: 20210113
  Serious: Yes (Congenital Anomaly, Other)
  Sender: FDA-Public Use
  Company Number: CA-ASTRAZENECA-2020SF08216

PATIENT
  Age: 24310 Day
  Sex: Male

DRUGS (7)
  1. CALQUENCE [Suspect]
     Active Substance: ACALABRUTINIB
     Indication: CHRONIC LYMPHOCYTIC LEUKAEMIA
     Route: 048
     Dates: start: 20200819, end: 20200820
  2. CALQUENCE [Suspect]
     Active Substance: ACALABRUTINIB
     Indication: CHRONIC LYMPHOCYTIC LEUKAEMIA
     Dosage: DOSE UNKNOWN
     Route: 048
     Dates: end: 20200902
  3. CALQUENCE [Suspect]
     Active Substance: ACALABRUTINIB
     Indication: CHRONIC LYMPHOCYTIC LEUKAEMIA
     Dosage: DOSE UNKNOWN
     Route: 048
     Dates: start: 20200828
  4. TRAMACET [Concomitant]
     Active Substance: ACETAMINOPHEN\TRAMADOL
  5. CALQUENCE [Suspect]
     Active Substance: ACALABRUTINIB
     Indication: CHRONIC LYMPHOCYTIC LEUKAEMIA
     Dosage: IN THE MORNING
     Route: 048
     Dates: start: 20200821
  6. CALQUENCE [Suspect]
     Active Substance: ACALABRUTINIB
     Indication: CHRONIC LYMPHOCYTIC LEUKAEMIA
     Dosage: ONE DOSE THAT EVENING
     Route: 048
     Dates: start: 20200818
  7. IMBRUVICA [Concomitant]
     Active Substance: IBRUTINIB
     Indication: CHRONIC LYMPHOCYTIC LEUKAEMIA
     Dates: start: 20180612, end: 20180810

REACTIONS (7)
  - Feeling jittery [Recovering/Resolving]
  - Headache [Recovering/Resolving]
  - Migraine [Recovered/Resolved]
  - Hypophagia [Recovered/Resolved]
  - Tremor [Recovering/Resolving]
  - Renal pain [Recovered/Resolved]
  - Muscle spasms [Recovering/Resolving]

NARRATIVE: CASE EVENT DATE: 20200821
